FAERS Safety Report 21523837 (Version 5)
Quarter: 2022Q4

REPORT INFORMATION
  Report Type: Report from Study
  Country: CA (occurrence: CA)
  Receive Date: 20221029
  Receipt Date: 20221214
  Transmission Date: 20230113
  Serious: Yes (Hospitalization)
  Sender: FDA-Public Use
  Company Number: CA-ABBVIE-4178501

PATIENT
  Age: 68 Year
  Sex: Male
  Weight: 102 kg

DRUGS (19)
  1. RISANKIZUMAB [Suspect]
     Active Substance: RISANKIZUMAB
     Indication: Product used for unknown indication
     Dosage: FORM STRENGTH: 150 MILLIGRAM
     Route: 058
     Dates: start: 20191017, end: 20191117
  2. RISANKIZUMAB [Suspect]
     Active Substance: RISANKIZUMAB
     Dosage: FORM STRENGTH: 150 MILLIGRAM
     Route: 058
     Dates: start: 20191117
  3. RISANKIZUMAB [Suspect]
     Active Substance: RISANKIZUMAB
     Dosage: FORM STRENGTH: 150 MILLIGRAM
     Route: 058
  4. MORPHINE [Concomitant]
     Active Substance: MORPHINE
     Indication: Hip fracture
     Dosage: TIME INTERVAL: AS NECESSARY
     Route: 048
     Dates: start: 20191220
  5. CALCIUM [Concomitant]
     Active Substance: CALCIUM
     Indication: Hip fracture
     Route: 048
     Dates: start: 20191223
  6. VENTOLIN [Concomitant]
     Active Substance: ALBUTEROL SULFATE
     Indication: Chronic obstructive pulmonary disease
     Dosage: TIME INTERVAL: AS NECESSARY
     Route: 048
     Dates: start: 19980101
  7. LUMIGAN [Concomitant]
     Active Substance: BIMATOPROST
     Indication: Cataract
     Route: 047
     Dates: start: 20200522
  8. SPIRIVA [Concomitant]
     Active Substance: TIOTROPIUM BROMIDE MONOHYDRATE
     Indication: Chronic obstructive pulmonary disease
     Route: 048
     Dates: start: 20000101
  9. LASIX [Concomitant]
     Active Substance: FUROSEMIDE
     Indication: Oedema
     Dosage: TIME INTERVAL: AS NECESSARY
     Route: 048
     Dates: start: 201906
  10. Aermony respiclick [Concomitant]
     Indication: Product used for unknown indication
  11. OXYGEN [Concomitant]
     Active Substance: OXYGEN
     Indication: Chronic obstructive pulmonary disease
     Dosage: TIME INTERVAL: AS NECESSARY: AS NEEDED
     Route: 045
     Dates: start: 201911
  12. SPIRIVA RESPIMAT [Concomitant]
     Active Substance: TIOTROPIUM BROMIDE
     Indication: Product used for unknown indication
     Dosage: 2 INHALATION?FORM STRENGTH: 2.5 MICROGRAM
  13. VARENICLINE TARTRATE [Concomitant]
     Active Substance: VARENICLINE TARTRATE
     Indication: Product used for unknown indication
     Dosage: ADMINISTER ON 4,5,6 AND 7 DAYS OF THERAPY
  14. ALBUTEROL [Concomitant]
     Active Substance: ALBUTEROL
     Indication: Dyspnoea
     Dosage: 1-2 PUFF INHALATION
  15. CICLESONIDE [Concomitant]
     Active Substance: CICLESONIDE
     Indication: Product used for unknown indication
     Dosage: 2 SPRAYS INTRANASAL INTO EACH NOSTRIL?FORM STRENGTH: 50 MICROGRAM
  16. CLOBETASOL [Concomitant]
     Active Substance: CLOBETASOL
     Indication: Product used for unknown indication
     Dosage: FORM STRENGTH: 0.05 PERCENT?APPLIED TO FEET
     Route: 061
  17. ELIQUIS [Concomitant]
     Active Substance: APIXABAN
     Indication: Pulmonary thrombosis
  18. ELIQUIS [Concomitant]
     Active Substance: APIXABAN
     Indication: Pulmonary thrombosis
     Route: 048
     Dates: start: 20220520
  19. OLODATEROL HYDROCHLORIDE\TIOTROPIUM BROMIDE MONOHYDRATE [Concomitant]
     Active Substance: OLODATEROL HYDROCHLORIDE\TIOTROPIUM BROMIDE MONOHYDRATE
     Indication: Product used for unknown indication
     Dosage: 2 PUFF INHALATION DAILY?FORM STRENGTH: 2.5 MICROGRAM

REACTIONS (2)
  - Chronic obstructive pulmonary disease [Recovered/Resolved]
  - Chronic obstructive pulmonary disease [Recovered/Resolved]

NARRATIVE: CASE EVENT DATE: 20220808
